FAERS Safety Report 7693676-7 (Version None)
Quarter: 2011Q3

REPORT INFORMATION
  Report Type: 
  Country: None (occurrence: None)
  Receive Date: 20110819
  Receipt Date: 20110808
  Transmission Date: 20111222
  Serious: No
  Sender: FDA-Public Use
  Company Number: US-B.I. PHARMACEUTICALS,INC./RIDGEFIELD-2011-BP-19465BP

PATIENT
  Sex: Female

DRUGS (7)
  1. TEGRETOL [Concomitant]
     Indication: NEUROPATHY PERIPHERAL
  2. INSULIN [Concomitant]
     Indication: DIABETES MELLITUS
  3. PRADAXA [Suspect]
     Indication: ATRIAL FIBRILLATION
     Dosage: 300 MG
     Route: 048
     Dates: start: 20110601, end: 20110601
  4. PAXIL [Concomitant]
     Indication: DEPRESSION
  5. LASIX [Concomitant]
     Indication: FLUID RETENTION
  6. LIPITOR [Concomitant]
     Indication: BLOOD CHOLESTEROL INCREASED
  7. METFORMIN HCL [Concomitant]
     Indication: DIABETES MELLITUS

REACTIONS (2)
  - MYALGIA [None]
  - DYSPEPSIA [None]
